FAERS Safety Report 8775471 (Version 2)
Quarter: 2012Q4

REPORT INFORMATION
  Report Type: Report from Study
  Country: NL (occurrence: NL)
  Receive Date: 20120911
  Receipt Date: 20120911
  Transmission Date: 20130627
  Serious: Yes (Hospitalization)
  Sender: FDA-Public Use
  Company Number: NL-ROCHE-793584

PATIENT
  Age: 64 Year
  Sex: Female
  Weight: 98 kg

DRUGS (13)
  1. MABTHERA [Suspect]
     Indication: DIFFUSE LARGE B-CELL LYMPHOMA
     Dosage: FREQUENCY PER PROTOCOL
     Route: 042
  2. MABTHERA [Suspect]
     Route: 042
  3. PREDNISONE/PREDNISONE [Suspect]
     Indication: DIFFUSE LARGE B-CELL LYMPHOMA
     Dosage: FREQUENCY: DAY 1-5 PER 2 WEEK CYCLE
     Route: 048
  4. PREDNISONE [Suspect]
     Route: 048
  5. CYCLOPHOSPHAMIDE/CYCLOPHOSPHAMIDE [Suspect]
     Indication: DIFFUSE LARGE B-CELL LYMPHOMA
     Dosage: FREQUENCY PER PROTOCOL
     Route: 042
  6. CYCLOPHOSPHAMIDE [Suspect]
     Route: 042
  7. DOXORUBICIN/DOXORUBICIN HYDROCHLORIDE [Suspect]
     Indication: DIFFUSE LARGE B-CELL LYMPHOMA
     Dosage: FREQUENCY PER PROTOCOL
     Route: 042
  8. DOXORUBICIN/DOXORUBICIN HYDROCHLORIDE [Suspect]
     Route: 042
  9. VINCRISTINE/VINCRISTINE [Suspect]
     Indication: DIFFUSE LARGE B-CELL LYMPHOMA
     Dosage: FREQUENCY PER PROTOCOL
     Route: 042
  10. VINCRISTINE [Suspect]
     Route: 058
  11. FILGRASTIM [Suspect]
     Indication: DIFFUSE LARGE B-CELL LYMPHOMA
     Dosage: DAY 2 PER 2 WEEK CYCLE. FREQUENCY PER PROTOCOL
     Route: 058
  12. FILGRASTIM [Suspect]
     Route: 058
  13. ALLOPURINOL [Concomitant]
     Indication: PROPHYLAXIS
     Dosage: INDICATION: PREVENTION OF TUMOUR LYSIS SYNDROME
     Route: 048

REACTIONS (4)
  - Delirium [Recovered/Resolved]
  - Neutropenia [Recovered/Resolved]
  - Malaise [Recovered/Resolved]
  - Mental disorder [Recovered/Resolved]
